FAERS Safety Report 4357430-6 (Version None)
Quarter: 2004Q2

REPORT INFORMATION
  Report Type: 
  Country: None (occurrence: None)
  Receive Date: 20040506
  Receipt Date: 20040423
  Transmission Date: 20050107
  Serious: Yes (Other)
  Sender: FDA-Public Use
  Company Number: 2004027213

PATIENT
  Age: 57 Year
  Sex: Female
  Weight: 54.4316 kg

DRUGS (4)
  1. TIKOSYN [Suspect]
     Indication: ATRIAL FIBRILLATION
     Dosage: 1000 MCG (BID), ORAL
     Route: 048
     Dates: start: 20040101
  2. PROVELLA-14 [Concomitant]
  3. WARFARIN SODIUM [Concomitant]
  4. DIGOXIN [Concomitant]

REACTIONS (6)
  - ATRIAL FIBRILLATION [None]
  - CARDIAC FLUTTER [None]
  - CARDIAC VENTRICULAR DISORDER [None]
  - DISEASE RECURRENCE [None]
  - EXTRASYSTOLES [None]
  - MITRAL VALVE PROLAPSE [None]
